APPROVED DRUG PRODUCT: CAPECITABINE
Active Ingredient: CAPECITABINE
Strength: 150MG
Dosage Form/Route: TABLET;ORAL
Application: A209365 | Product #001 | TE Code: AB
Applicant: MSN LABORATORIES PRIVATE LTD
Approved: Jul 2, 2018 | RLD: No | RS: No | Type: RX